FAERS Safety Report 8766156 (Version 1)
Quarter: 2012Q4

REPORT INFORMATION
  Report Type: Report from Study
  Country: CA (occurrence: CA)
  Receive Date: 20120904
  Receipt Date: 20120904
  Transmission Date: 20130627
  Serious: Yes (Hospitalization, Other)
  Sender: FDA-Public Use
  Company Number: CA-ROCHE-1106862

PATIENT
  Sex: Female
  Weight: 65.83 kg

DRUGS (4)
  1. ROACTEMRA [Suspect]
     Indication: RHEUMATOID ARTHRITIS
     Route: 042
     Dates: start: 20120608
  2. ACTONEL [Concomitant]
  3. METFORMIN [Concomitant]
  4. INSULIN [Concomitant]

REACTIONS (3)
  - Gastrointestinal haemorrhage [Unknown]
  - Hepatic cirrhosis [Not Recovered/Not Resolved]
  - Hepatitis C [Unknown]
